FAERS Safety Report 24205425 (Version 1)
Quarter: 2024Q3

REPORT INFORMATION
  Report Type: Spontaneous
  Country: CN (occurrence: None)
  Receive Date: 20240813
  Receipt Date: 20240813
  Transmission Date: 20241016
  Serious: Yes (Other)
  Sender: ASTRAZENECA
  Company Number: 2024A178617

PATIENT
  Age: 37 Year
  Sex: Male

DRUGS (3)
  1. TICAGRELOR [Suspect]
     Active Substance: TICAGRELOR
     Indication: Vasodilatation
     Route: 048
     Dates: start: 20240711, end: 20240711
  2. THEOPHYLLINE SODIUM GLYCINATE [Concomitant]
     Active Substance: THEOPHYLLINE SODIUM GLYCINATE
     Indication: Vasodilatation
     Route: 048
  3. THEOPHYLLINE SODIUM GLYCINATE [Concomitant]
     Active Substance: THEOPHYLLINE SODIUM GLYCINATE
     Indication: Dyspnoea
     Route: 048

REACTIONS (3)
  - Chest discomfort [Recovered/Resolved]
  - Asphyxia [Recovered/Resolved]
  - Dyspnoea [Recovered/Resolved]

NARRATIVE: CASE EVENT DATE: 20240711
